FAERS Safety Report 5717281-4 (Version None)
Quarter: 2008Q2

REPORT INFORMATION
  Report Type: 
  Country: None (occurrence: None)
  Receive Date: 20080423
  Receipt Date: 20080408
  Transmission Date: 20081010
  Serious: Yes (Death)
  Sender: FDA-Public Use
  Company Number: S08-SWE-01122-01

PATIENT
  Age: 59 Year
  Sex: Male

DRUGS (3)
  1. CITALOPRAM HYDROBROMIDE [Suspect]
     Indication: DEPRESSION
     Dosage: 40 MG QD PO
     Route: 048
  2. ALCOHOL [Suspect]
  3. DIAZEPAM [Suspect]
     Indication: DEPRESSION

REACTIONS (3)
  - ASTHENIA [None]
  - FATIGUE [None]
  - OVERDOSE [None]
